FAERS Safety Report 9268317 (Version 2)
Quarter: 2013Q3

REPORT INFORMATION
  Report Type: Spontaneous
  Country: US (occurrence: US)
  Receive Date: 20130502
  Receipt Date: 20130718
  Transmission Date: 20140515
  Serious: Yes (Other)
  Sender: FDA-Public Use
  Company Number: US-ELI_LILLY_AND_COMPANY-US201304007464

PATIENT
  Sex: Female
  Weight: 63.04 kg

DRUGS (11)
  1. FORTEO [Suspect]
     Indication: OSTEOPOROSIS POSTMENOPAUSAL
     Dosage: UNK, UNKNOWN
     Route: 058
     Dates: start: 20100819, end: 20101020
  2. FORTEO [Suspect]
     Dosage: UNK, UNKNOWN
     Route: 065
     Dates: start: 20130415
  3. CALCIUM CARBONATE [Concomitant]
  4. MAGNESIUM [Concomitant]
  5. BACLOFEN [Concomitant]
  6. COUMADIN                           /00014802/ [Concomitant]
  7. VITAMIN C                          /00008001/ [Concomitant]
  8. MVI [Concomitant]
  9. VITAMIN D3 [Concomitant]
  10. ZOLOFT [Concomitant]
  11. OMEPRAZOLE [Concomitant]

REACTIONS (7)
  - Lumbar vertebral fracture [Recovered/Resolved]
  - Femur fracture [Recovered/Resolved]
  - Hip fracture [Recovered/Resolved]
  - Fall [Recovered/Resolved]
  - Vomiting [Recovered/Resolved]
  - Ankle fracture [Recovered/Resolved]
  - Tibia fracture [Recovered/Resolved]
